FAERS Safety Report 4733080-4 (Version None)
Quarter: 2005Q3

REPORT INFORMATION
  Report Type: 
  Country: None (occurrence: None)
  Receive Date: 20050803
  Receipt Date: 20050408
  Transmission Date: 20060218
  Serious: Yes (Other)
  Sender: FDA-Public Use
  Company Number: 2005UW11145

PATIENT
  Age: 47 Year
  Sex: Female
  Weight: 58.1 kg

DRUGS (2)
  1. NOLVADEX [Suspect]
     Indication: BREAST CANCER
     Route: 048
  2. CALCIUM GLUCONATE [Concomitant]

REACTIONS (3)
  - HOT FLUSH [None]
  - HYSTERECTOMY [None]
  - OVARIAN DISORDER [None]
